FAERS Safety Report 7481206-4 (Version None)
Quarter: 2011Q2

REPORT INFORMATION
  Report Type: 
  Country: None (occurrence: None)
  Receive Date: 20110516
  Receipt Date: 20110502
  Transmission Date: 20111010
  Serious: Yes (Other)
  Sender: FDA-Public Use
  Company Number: US-ELI_LILLY_AND_COMPANY-US201008008323

PATIENT
  Sex: Female

DRUGS (3)
  1. FORTEO [Suspect]
     Indication: OSTEOPOROSIS
     Dosage: 20 UG, DAILY (1/D)
     Dates: start: 20100801
  2. FORTEO [Suspect]
     Dosage: 20 UG, DAILY (1/D)
  3. FORTEO [Suspect]
     Dosage: 20 UG, QD

REACTIONS (12)
  - SWELLING [None]
  - VOMITING [None]
  - TRANSIENT ISCHAEMIC ATTACK [None]
  - INJECTION SITE HAEMATOMA [None]
  - JAW DISORDER [None]
  - MALAISE [None]
  - INJECTION SITE HAEMORRHAGE [None]
  - BLOOD POTASSIUM ABNORMAL [None]
  - ERYTHEMA [None]
  - NAUSEA [None]
  - BLISTER [None]
  - MIGRAINE [None]
